FAERS Safety Report 6044709-5 (Version None)
Quarter: 2009Q1

REPORT INFORMATION
  Report Type: 
  Country: None (occurrence: None)
  Receive Date: 20090120
  Receipt Date: 20090113
  Transmission Date: 20090719
  Serious: Yes (Other)
  Sender: FDA-Public Use
  Company Number: US-GENENTECH-275255

PATIENT
  Sex: Male

DRUGS (5)
  1. XOLAIR [Suspect]
     Indication: ASTHMA
     Dosage: 375 MG, UNK
     Dates: start: 20070101
  2. PREDNISONE [Concomitant]
     Indication: ASTHMA
     Dosage: UNK
     Route: 048
  3. PULMICORT-100 [Concomitant]
     Indication: ASTHMA
     Dosage: UNK
  4. ZYFLO [Concomitant]
     Indication: ASTHMA
     Dosage: UNK
     Route: 048
  5. COMBIVENT [Concomitant]
     Indication: ASTHMA
     Dosage: UNK

REACTIONS (2)
  - ANGIOEDEMA [None]
  - URTICARIA [None]
